FAERS Safety Report 24868533 (Version 1)
Quarter: 2025Q1

REPORT INFORMATION
  Report Type: Spontaneous
  Country: AU (occurrence: AU)
  Receive Date: 20250121
  Receipt Date: 20250121
  Transmission Date: 20250409
  Serious: Yes (Life-Threatening, Other)
  Sender: BAXTER
  Company Number: AU-BAXTER-2025BAX010284

PATIENT
  Age: 26 Year
  Sex: Female

DRUGS (1)
  1. DEXTROSE [Suspect]
     Active Substance: DEXTROSE MONOHYDRATE
     Route: 040
     Dates: start: 20250101

REACTIONS (5)
  - Diabetic ketoacidosis [Unknown]
  - Brain oedema [Unknown]
  - Wrong product administered [Unknown]
  - Condition aggravated [Unknown]
  - Malaise [Unknown]

NARRATIVE: CASE EVENT DATE: 20250101
